FAERS Safety Report 17774609 (Version 1)
Quarter: 2020Q2

REPORT INFORMATION
  Report Type: Report from Study
  Country: EC (occurrence: EC)
  Receive Date: 20200513
  Receipt Date: 20200513
  Transmission Date: 20200714
  Serious: Yes (Other)
  Sender: FDA-Public Use
  Company Number: EC-CHEPLA-2124357

PATIENT
  Sex: Female

DRUGS (1)
  1. XENICAL [Suspect]
     Active Substance: ORLISTAT
     Indication: PRODUCT USED FOR UNKNOWN INDICATION
     Route: 048

REACTIONS (7)
  - Enteritis infectious [Unknown]
  - Abdominal pain [Unknown]
  - Infection [Unknown]
  - Diarrhoea [Unknown]
  - Gastric disorder [Unknown]
  - Decreased appetite [Unknown]
  - Constipation [Unknown]
